FAERS Safety Report 6626411-1 (Version None)
Quarter: 2010Q1

REPORT INFORMATION
  Report Type: 
  Country: None (occurrence: None)
  Receive Date: 20100310
  Receipt Date: 20100301
  Transmission Date: 20100710
  Serious: Yes (Hospitalization)
  Sender: FDA-Public Use
  Company Number: IE-MEDIMMUNE-MEDI-0010698

PATIENT
  Sex: Male

DRUGS (2)
  1. SYNAGIS [Suspect]
     Route: 030
     Dates: start: 20091014
  2. SYNAGIS [Suspect]
     Route: 030
     Dates: end: 20100301

REACTIONS (2)
  - NASOPHARYNGITIS [None]
  - PNEUMONIA VIRAL [None]
